FAERS Safety Report 21666389 (Version 12)
Quarter: 2023Q2

REPORT INFORMATION
  Report Type: Spontaneous
  Country: CA (occurrence: CA)
  Receive Date: 20221201
  Receipt Date: 20230626
  Transmission Date: 20230722
  Serious: Yes (Other)
  Sender: FDA-Public Use
  Company Number: CA-CELLTRION INC.-2022CA012393

PATIENT

DRUGS (25)
  1. INFLECTRA [Suspect]
     Active Substance: INFLIXIMAB-DYYB
     Indication: Crohn^s disease
     Dosage: 500 MG, 0, 2, 6, THEN EVERY 8 WEEKS
     Route: 042
     Dates: start: 20220526
  2. INFLECTRA [Suspect]
     Active Substance: INFLIXIMAB-DYYB
     Dosage: 500 MG, Q 0, 2, 6, THEN EVERY 8 WEEKS
     Route: 042
     Dates: start: 20220901
  3. INFLECTRA [Suspect]
     Active Substance: INFLIXIMAB-DYYB
     Dosage: 500 MG, Q 0, 2, 6, THEN EVERY 8 WEEKS
     Route: 042
     Dates: start: 20221027, end: 20221027
  4. INFLECTRA [Suspect]
     Active Substance: INFLIXIMAB-DYYB
     Dosage: 500 MG, EVERY 4 WEEKS
     Route: 042
     Dates: start: 20221124
  5. INFLECTRA [Suspect]
     Active Substance: INFLIXIMAB-DYYB
     Dosage: 500 MG, EVERY 4 WEEKS
     Route: 042
     Dates: start: 20221222
  6. INFLECTRA [Suspect]
     Active Substance: INFLIXIMAB-DYYB
     Dosage: 500 MG, EVERY 4 WEEKS
     Route: 042
     Dates: start: 20230130
  7. INFLECTRA [Suspect]
     Active Substance: INFLIXIMAB-DYYB
     Dosage: 500 MG (RECEIVED 300MG), EVERY 4 WEEKS
     Route: 042
     Dates: start: 20230328
  8. INFLECTRA [Suspect]
     Active Substance: INFLIXIMAB-DYYB
     Dosage: UNK
     Route: 042
     Dates: start: 20230425
  9. INFLECTRA [Suspect]
     Active Substance: INFLIXIMAB-DYYB
     Dosage: UNK
     Route: 042
     Dates: start: 20230521
  10. ALVESCO [Concomitant]
     Active Substance: CICLESONIDE
     Dosage: UNK
  11. ALVESCO [Concomitant]
     Active Substance: CICLESONIDE
     Dosage: 1 DF
     Route: 065
  12. FAMOTIDINE [Concomitant]
     Active Substance: FAMOTIDINE
     Dosage: UNK
  13. FAMOTIDINE [Concomitant]
     Active Substance: FAMOTIDINE
     Dosage: 1 DF
     Route: 065
  14. FLUTICASONE [Concomitant]
     Active Substance: FLUTICASONE
     Dosage: UNK
  15. FLUTICASONE [Concomitant]
     Active Substance: FLUTICASONE
     Dosage: 1 DF
     Route: 065
  16. NEXIUM [Concomitant]
     Active Substance: ESOMEPRAZOLE MAGNESIUM
     Dosage: UNK
  17. NEXIUM [Concomitant]
     Active Substance: ESOMEPRAZOLE MAGNESIUM
     Dosage: 1 DF
     Route: 065
  18. PREDNISONE [Concomitant]
     Active Substance: PREDNISONE
     Dosage: 5 MG, DAILY
  19. PREDNISONE [Concomitant]
     Active Substance: PREDNISONE
     Dosage: 40 MG
     Route: 065
     Dates: start: 20220514
  20. SYNTHROID [Concomitant]
     Active Substance: LEVOTHYROXINE SODIUM
     Dosage: UNK
  21. SYNTHROID [Concomitant]
     Active Substance: LEVOTHYROXINE SODIUM
     Dosage: 1 DF
     Route: 065
  22. ALBUTEROL SULFATE [Concomitant]
     Active Substance: ALBUTEROL SULFATE
     Dosage: UNK
  23. ALBUTEROL SULFATE [Concomitant]
     Active Substance: ALBUTEROL SULFATE
     Dosage: 1 DF
     Route: 065
  24. ZOPICLONE [Concomitant]
     Active Substance: ZOPICLONE
     Dosage: UNK
  25. ZOPICLONE [Concomitant]
     Active Substance: ZOPICLONE
     Dosage: 1 DF
     Route: 065

REACTIONS (16)
  - Anaemia [Not Recovered/Not Resolved]
  - Drug level below therapeutic [Unknown]
  - Condition aggravated [Not Recovered/Not Resolved]
  - Fatigue [Not Recovered/Not Resolved]
  - Arthralgia [Not Recovered/Not Resolved]
  - Inflammation [Unknown]
  - Pain in extremity [Unknown]
  - COVID-19 [Recovering/Resolving]
  - Blood uric acid increased [Unknown]
  - Light chain analysis increased [Unknown]
  - Alanine aminotransferase increased [Unknown]
  - Musculoskeletal stiffness [Unknown]
  - Rash [Unknown]
  - Swelling [Unknown]
  - Off label use [Unknown]
  - Incorrect dose administered [Unknown]

NARRATIVE: CASE EVENT DATE: 20220101
